FAERS Safety Report 6710668-2 (Version None)
Quarter: 2010Q2

REPORT INFORMATION
  Report Type: 
  Country: None (occurrence: None)
  Receive Date: 20100504
  Receipt Date: 20100504
  Transmission Date: 20101027
  Serious: Yes (Life-Threatening, Hospitalization)
  Sender: FDA-Public Use
  Company Number: None

PATIENT
  Age: 53 Year
  Sex: Female
  Weight: 97.5234 kg

DRUGS (2)
  1. YASMIN [Suspect]
     Indication: DYSFUNCTIONAL UTERINE BLEEDING
     Dosage: ONE TABLET DAILY PO
     Route: 048
     Dates: start: 20090725, end: 20100115
  2. YASMIN [Suspect]
     Indication: MENORRHAGIA
     Dosage: ONE TABLET DAILY PO
     Route: 048
     Dates: start: 20090725, end: 20100115

REACTIONS (1)
  - PULMONARY EMBOLISM [None]
